FAERS Safety Report 10992000 (Version 2)
Quarter: 2015Q2

REPORT INFORMATION
  Report Type: Spontaneous
  Country: US (occurrence: US)
  Receive Date: 20150406
  Receipt Date: 20150525
  Transmission Date: 20150821
  Serious: No
  Sender: FDA-Public Use
  Company Number: US-JNJFOC-20140926404

PATIENT
  Age: 46 Year
  Sex: Female
  Weight: 77.11 kg

DRUGS (7)
  1. REMICADE [Suspect]
     Active Substance: INFLIXIMAB
     Indication: RHEUMATOID ARTHRITIS
     Route: 042
     Dates: start: 2014
  2. REMICADE [Suspect]
     Active Substance: INFLIXIMAB
     Indication: RHEUMATOID ARTHRITIS
     Route: 042
     Dates: start: 2014
  3. TYLENOL [Suspect]
     Active Substance: ACETAMINOPHEN
     Indication: PREMEDICATION
     Route: 048
     Dates: start: 2014, end: 2014
  4. CLARITIN [Suspect]
     Active Substance: LORATADINE
     Indication: PREMEDICATION
     Route: 065
     Dates: start: 2014
  5. CLARITIN [Suspect]
     Active Substance: LORATADINE
     Indication: PREMEDICATION
     Route: 065
     Dates: start: 2014
  6. REMICADE [Suspect]
     Active Substance: INFLIXIMAB
     Indication: RHEUMATOID ARTHRITIS
     Route: 042
     Dates: start: 20140917
  7. TYLENOL [Suspect]
     Active Substance: ACETAMINOPHEN
     Route: 048

REACTIONS (18)
  - Pruritus generalised [Not Recovered/Not Resolved]
  - Fatigue [Unknown]
  - Eye swelling [Recovered/Resolved]
  - Burning sensation [Not Recovered/Not Resolved]
  - Somnolence [Unknown]
  - Feeling hot [Unknown]
  - Eye pruritus [Unknown]
  - Headache [Unknown]
  - Rash macular [Unknown]
  - Ocular hyperaemia [Unknown]
  - Rheumatoid arthritis [Not Recovered/Not Resolved]
  - Pruritus [Unknown]
  - Urticaria [Recovered/Resolved]
  - Panic attack [Unknown]
  - Erythema [Recovered/Resolved]
  - Formication [Recovered/Resolved]
  - Arthropod bite [Unknown]
  - Joint swelling [Unknown]

NARRATIVE: CASE EVENT DATE: 2014
